FAERS Safety Report 24182876 (Version 4)
Quarter: 2025Q4

REPORT INFORMATION
  Report Type: Spontaneous
  Country: CA (occurrence: CA)
  Receive Date: 20240807
  Receipt Date: 20251030
  Transmission Date: 20260118
  Serious: Yes (Hospitalization, Other)
  Sender: AUROBINDO
  Company Number: CA-MLMSERVICE-20240719-PI137468-00206-1

PATIENT
  Age: 53 Year
  Sex: Female

DRUGS (16)
  1. CLOZAPINE [Suspect]
     Active Substance: CLOZAPINE
     Indication: Schizoaffective disorder
     Dosage: 500 MILLIGRAM, EVERY OTHER DAY (ALTERNATING DOSES OF 500/525 MG/DAY)
     Route: 065
  2. CLOZAPINE [Suspect]
     Active Substance: CLOZAPINE
     Dosage: UNK (ATTEMPTS TO DOSE REDUCTION)
     Route: 065
  3. CLOZAPINE [Suspect]
     Active Substance: CLOZAPINE
     Dosage: 525 MILLIGRAM, EVERY OTHER DAY (ALTERNATING DOSES OF 500/525 MG/DAY)
     Route: 065
  4. CLOZAPINE [Suspect]
     Active Substance: CLOZAPINE
     Dosage: 600 MILLIGRAM, ONCE A DAY (MAXIMUM DOSE)
     Route: 065
  5. QUETIAPINE [Suspect]
     Active Substance: QUETIAPINE
     Indication: Schizoaffective disorder
     Dosage: UNK
     Route: 065
  6. SERTRALINE [Suspect]
     Active Substance: SERTRALINE HYDROCHLORIDE
     Indication: Schizoaffective disorder
     Dosage: 125 MILLIGRAM, ONCE A DAY
     Route: 065
  7. OLANZAPINE [Suspect]
     Active Substance: OLANZAPINE
     Indication: Major depression
  8. OLANZAPINE [Suspect]
     Active Substance: OLANZAPINE
     Indication: Generalised anxiety disorder
  9. LORAZEPAM [Suspect]
     Active Substance: LORAZEPAM
     Indication: Schizoaffective disorder
     Dosage: 1 MILLIGRAM, 3 TIMES A DAY
     Route: 065
  10. PERPHENAZINE [Suspect]
     Active Substance: PERPHENAZINE
     Indication: Schizoaffective disorder
     Dosage: UNK
     Route: 065
  11. CHLORPROMAZINE [Suspect]
     Active Substance: CHLORPROMAZINE
     Indication: Major depression
     Dosage: UNK
     Route: 065
  12. CHLORPROMAZINE [Suspect]
     Active Substance: CHLORPROMAZINE
     Indication: Generalised anxiety disorder
  13. HALOPERIDOL [Suspect]
     Active Substance: HALOPERIDOL
     Indication: Major depression
     Dosage: UNK
     Route: 065
  14. HALOPERIDOL [Suspect]
     Active Substance: HALOPERIDOL
     Indication: Generalised anxiety disorder
  15. THIORIDAZINE [Suspect]
     Active Substance: THIORIDAZINE
     Indication: Major depression
     Dosage: UNK
     Route: 065
  16. THIORIDAZINE [Suspect]
     Active Substance: THIORIDAZINE
     Indication: Generalised anxiety disorder

REACTIONS (14)
  - Tardive dyskinesia [Recovered/Resolved]
  - Dystonia [Recovered/Resolved]
  - Head titubation [Recovered/Resolved]
  - Hyponatraemia [Recovered/Resolved]
  - Polydipsia [Recovered/Resolved]
  - Seizure [Recovered/Resolved]
  - Tremor [Recovered/Resolved]
  - Apraxia [Recovering/Resolving]
  - Dyskinesia [Recovered/Resolved]
  - Parkinsonism [Recovered/Resolved]
  - Myoclonus [Recovered/Resolved]
  - Movement disorder [Recovered/Resolved]
  - Off label use [Recovered/Resolved]
  - Drug ineffective [Recovering/Resolving]
